FAERS Safety Report 8599049-7 (Version None)
Quarter: 2012Q3

REPORT INFORMATION
  Report Type: 
  Country: None (occurrence: None)
  Receive Date: 20120816
  Receipt Date: 19950330
  Transmission Date: 20120928
  Serious: Yes (Other)
  Sender: FDA-Public Use
  Company Number: US-ROCHE-1101597

PATIENT
  Sex: Female

DRUGS (5)
  1. ACTIVASE [Suspect]
     Indication: ACUTE MYOCARDIAL INFARCTION
     Route: 040
  2. HEPARIN [Concomitant]
     Dosage: 5000 UNITS
     Route: 040
  3. HEPARIN [Concomitant]
     Dosage: 1000 UNITS PER HOUR
  4. ACTIVASE [Suspect]
     Indication: MYOCARDIAL ISCHAEMIA
     Dosage: OVER 30 MIN
  5. ASPIRIN [Concomitant]
     Route: 048

REACTIONS (3)
  - DIZZINESS [None]
  - PAIN [None]
  - BRADYCARDIA [None]
